FAERS Safety Report 24139706 (Version 2)
Quarter: 2024Q3

REPORT INFORMATION
  Report Type: Spontaneous
  Country: US (occurrence: US)
  Receive Date: 20240726
  Receipt Date: 20240726
  Transmission Date: 20241016
  Serious: Yes (Hospitalization)
  Sender: ROCHE
  Company Number: US-ROCHE-10000028521

PATIENT
  Age: 30 Year
  Sex: Male
  Weight: 58.5 kg

DRUGS (17)
  1. OCREVUS [Suspect]
     Active Substance: OCRELIZUMAB
     Indication: Multiple sclerosis
     Dosage: OCREVUS SOLUTION INTRAVENOUS, EACH VIAL CONTAINS 300 MG
     Route: 042
     Dates: start: 202211
  2. OCREVUS [Suspect]
     Active Substance: OCRELIZUMAB
     Route: 042
  3. DEPAKOTE ER [Concomitant]
     Active Substance: DIVALPROEX SODIUM
  4. PROVIGIL [Concomitant]
     Active Substance: MODAFINIL
  5. INDERAL LA [Concomitant]
     Active Substance: PROPRANOLOL HYDROCHLORIDE
  6. DOXYCYCLINE [Concomitant]
     Active Substance: DOXYCYCLINE\DOXYCYCLINE HYCLATE
  7. BACTROBAN [Concomitant]
     Active Substance: MUPIROCIN CALCIUM
  8. IBUPROFEN [Concomitant]
     Active Substance: IBUPROFEN
     Dosage: AS NEEDED FOR PAIN
  9. PROZAC [Concomitant]
     Active Substance: FLUOXETINE HYDROCHLORIDE
  10. VALTOCO [Concomitant]
     Active Substance: DIAZEPAM
     Indication: Seizure
     Dosage: LIQUID THERAPY PACK, SPRAY IN EACH NOSTRIL DAILY
  11. VALTREX [Concomitant]
     Active Substance: VALACYCLOVIR HYDROCHLORIDE
  12. BACLOFEN [Concomitant]
     Active Substance: BACLOFEN
  13. OXYBUTYNIN [Concomitant]
     Active Substance: OXYBUTYNIN\OXYBUTYNIN CHLORIDE
  14. AMANTADINE [Concomitant]
     Active Substance: AMANTADINE
  15. FOLIC ACID [Concomitant]
     Active Substance: FOLIC ACID
  16. CLARITIN [Concomitant]
     Active Substance: LORATADINE
     Dosage: AS NEEDED
  17. CHOLECALCIFEROL [Concomitant]
     Active Substance: CHOLECALCIFEROL

REACTIONS (5)
  - Seizure [Recovered/Resolved]
  - Confusional state [Unknown]
  - Somnolence [Unknown]
  - Blood test abnormal [Unknown]
  - Blood pressure decreased [Unknown]

NARRATIVE: CASE EVENT DATE: 20240708
